FAERS Safety Report 9387506 (Version 2)
Quarter: 2013Q4

REPORT INFORMATION
  Report Type: Spontaneous
  Country: DE (occurrence: None)
  Receive Date: 20130627
  Receipt Date: 20131205
  Transmission Date: 20140711
  Serious: Yes (Hospitalization, Other)
  Sender: FDA-Public Use
  Company Number: AEDEU201300219

PATIENT
  Age: 47 Year
  Sex: Male
  Weight: 81 kg

DRUGS (1)
  1. GAMUNEX [Suspect]
     Indication: CHRONIC INFLAMMATORY DEMYELINATING POLYRADICULONEUROPATHY
     Route: 042
     Dates: start: 20130321

REACTIONS (6)
  - Chest pain [None]
  - Hypertension [None]
  - Bundle branch block right [None]
  - Blood creatine phosphokinase increased [None]
  - Infusion related reaction [None]
  - No reaction on previous exposure to drug [None]
